FAERS Safety Report 8733946 (Version 3)
Quarter: 2012Q4

REPORT INFORMATION
  Report Type: Spontaneous
  Country: FR (occurrence: None)
  Receive Date: 20120803
  Receipt Date: 20120924
  Transmission Date: 20130627
  Serious: Yes (Disabling)
  Sender: FDA-Public Use
  Company Number: 1358742

PATIENT
  Age: 61 Year
  Sex: Female
  Weight: 82 kg

DRUGS (5)
  1. DOCETAXEL [Suspect]
     Indication: BREAST NEOPLASM
     Route: 041
     Dates: start: 20120626, end: 20120627
  2. MEDROL [Concomitant]
  3. ONDANSETRON [Concomitant]
  4. METOCLOPRAMIDE [Concomitant]
  5. ALDACTONE /00006201/ [Concomitant]

REACTIONS (7)
  - Palmar-plantar erythrodysaesthesia syndrome [None]
  - Aphthous stomatitis [None]
  - Skin toxicity [None]
  - Paraesthesia [None]
  - Dyspepsia [None]
  - Epistaxis [None]
  - Pyrexia [None]
